FAERS Safety Report 6600415-7 (Version None)
Quarter: 2010Q1

REPORT INFORMATION
  Report Type: 
  Country: None (occurrence: None)
  Receive Date: 20100224
  Receipt Date: 20100222
  Transmission Date: 20100710
  Serious: No
  Sender: FDA-Public Use
  Company Number: US-B.I. PHARMACEUTICALS,INC./RIDGEFIELD-2010-BP-01173BP

PATIENT
  Sex: Female

DRUGS (8)
  1. SPIRIVA [Suspect]
     Indication: LUNG NEOPLASM MALIGNANT
     Dosage: 18 MCG
     Route: 055
  2. ALBUTEROL [Concomitant]
     Indication: LUNG NEOPLASM MALIGNANT
  3. FUROSEMIDE [Concomitant]
     Indication: LUNG NEOPLASM MALIGNANT
  4. METFORMIN HCL [Concomitant]
     Indication: DIABETES MELLITUS
  5. POTASSIUM CHLORIDE [Concomitant]
     Indication: DRUG THERAPY
  6. MAGNESIUM OXIDE [Concomitant]
     Indication: PROPHYLAXIS
  7. ASPIRIN [Concomitant]
     Indication: PROPHYLAXIS
  8. VITAMINS [Concomitant]
     Indication: PROPHYLAXIS

REACTIONS (4)
  - DYSPEPSIA [None]
  - DYSPNOEA [None]
  - GASTROOESOPHAGEAL REFLUX DISEASE [None]
  - GOUT [None]
